FAERS Safety Report 5326117-5 (Version None)
Quarter: 2007Q2

REPORT INFORMATION
  Report Type: 
  Country: None (occurrence: None)
  Receive Date: 20070516
  Receipt Date: 20070508
  Transmission Date: 20071010
  Serious: Yes (Other)
  Sender: FDA-Public Use
  Company Number: PHEH2007US06306

PATIENT
  Age: 67 Year
  Sex: Female
  Weight: 75.283 kg

DRUGS (13)
  1. ZOMETA [Suspect]
     Indication: METASTASES TO BONE
     Dosage: 4 MG EVERY FOUR WEEKS
     Route: 042
     Dates: start: 20050127, end: 20060802
  2. XELODA [Concomitant]
  3. FEMARA [Concomitant]
  4. ZYRTEC [Concomitant]
  5. SINGULAIR [Concomitant]
  6. GLIPIZIDE [Concomitant]
  7. XANAX [Concomitant]
  8. DOXYCYCLINE [Concomitant]
  9. LASIX [Concomitant]
  10. ELAVIL [Concomitant]
  11. ATENOLOL [Concomitant]
  12. RADIOTHERAPY [Concomitant]
     Dates: start: 20050919, end: 20050930
  13. RADIOTHERAPY [Concomitant]
     Dates: start: 20060803, end: 20060816

REACTIONS (11)
  - BONE DISORDER [None]
  - DENTAL CARE [None]
  - FATIGUE [None]
  - GINGIVAL PAIN [None]
  - IMPAIRED HEALING [None]
  - OSTEONECROSIS [None]
  - PERIODONTAL DISEASE [None]
  - PURULENCE [None]
  - SENSORY DISTURBANCE [None]
  - TOOTH EXTRACTION [None]
  - TOOTHACHE [None]
